FAERS Safety Report 8885125 (Version 1)
Quarter: 2012Q4

REPORT INFORMATION
  Report Type: 
  Country: US (occurrence: US)
  Receive Date: 20121102
  Receipt Date: 20121102
  Transmission Date: 20130627
  Serious: Yes (Other)
  Sender: FDA-Public Use
  Company Number: US-BRISTOL-MYERS SQUIBB COMPANY-17062399

PATIENT
  Sex: Female

DRUGS (1)
  1. ORENCIA [Suspect]
     Route: 042

REACTIONS (5)
  - Arthropathy [Unknown]
  - Urinary tract infection [Unknown]
  - Sinusitis [Unknown]
  - Bronchitis [Unknown]
  - Malaise [Unknown]
